FAERS Safety Report 8558056-0 (Version None)
Quarter: 2012Q3

REPORT INFORMATION
  Report Type: 
  Country: None (occurrence: None)
  Receive Date: 20120801
  Receipt Date: 20120724
  Transmission Date: 20120928
  Serious: Yes (Hospitalization, Other)
  Sender: FDA-Public Use
  Company Number: US-ELI_LILLY_AND_COMPANY-US201110004408

PATIENT
  Sex: Female

DRUGS (11)
  1. FORTEO [Suspect]
     Dosage: 20 UG, QD
  2. FORTEO [Suspect]
     Indication: OSTEOPOROSIS
     Dosage: 20 UG, QD
  3. CALCIUM CARBONATE [Concomitant]
  4. ADVAIR [Concomitant]
  5. FORTEO [Suspect]
     Dosage: 20 UG, QD
  6. OMEPRAZOLE [Concomitant]
     Dosage: 20 MG, UNK
  7. FEXOFENADINE [Concomitant]
  8. MECLIZINE [Concomitant]
     Dosage: 25 MG, UNK
  9. SIMVASTATIN [Concomitant]
  10. MULTI-VITAMINS [Concomitant]
  11. DICLOFENAC SODIUM [Concomitant]

REACTIONS (7)
  - PAIN [None]
  - INTESTINAL POLYP [None]
  - SPINAL FRACTURE [None]
  - FATIGUE [None]
  - MALAISE [None]
  - NASOPHARYNGITIS [None]
  - POSTURE ABNORMAL [None]
